FAERS Safety Report 7012958-5 (Version None)
Quarter: 2010Q3

REPORT INFORMATION
  Report Type: 
  Country: None (occurrence: None)
  Receive Date: 20100924
  Receipt Date: 20100917
  Transmission Date: 20110219
  Serious: Yes (Hospitalization)
  Sender: FDA-Public Use
  Company Number: PHHO2010FR14218

PATIENT
  Sex: Male
  Weight: 80 kg

DRUGS (6)
  1. RAD 666 / RAD 001A [Suspect]
     Indication: CARCINOID TUMOUR
     Dosage: 10 MG, QD
     Route: 048
     Dates: start: 20100210, end: 20100903
  2. BLINDED AFINITOR RAD+O+TAB [Suspect]
     Indication: CARCINOID TUMOUR
     Dosage: DOUBLE BLIND
     Route: 048
  3. BLINDED NO TREATMENT RECEIVED NOMED [Suspect]
     Indication: CARCINOID TUMOUR
     Dosage: DOUBLE BLIND
     Route: 048
  4. BLINDED PLACEBO COMP-PLA+ [Suspect]
     Indication: CARCINOID TUMOUR
     Dosage: DOUBLE BLIND
     Route: 048
  5. COAPROVEL [Concomitant]
     Indication: HYPERTENSION
  6. SMECTA [Concomitant]
     Indication: DIARRHOEA

REACTIONS (2)
  - DYSPNOEA EXERTIONAL [None]
  - LUNG DISORDER [None]
